FAERS Safety Report 19578638 (Version 1)
Quarter: 2021Q3

REPORT INFORMATION
  Report Type: Report from Study
  Country: US (occurrence: US)
  Receive Date: 20210720
  Receipt Date: 20210720
  Transmission Date: 20211014
  Serious: Yes (Other)
  Sender: FDA-Public Use
  Company Number: US-PTC THERAPEUTICS, INC.-US-2021PTC000244

PATIENT
  Sex: Male
  Weight: 32 kg

DRUGS (2)
  1. EMFLAZA [Suspect]
     Active Substance: DEFLAZACORT
     Indication: MYOTONIA
     Dosage: 18 MG, QD
     Route: 048
     Dates: start: 20210113
  2. EMFLAZA [Suspect]
     Active Substance: DEFLAZACORT
     Dosage: 18 MG, QD
     Route: 048
     Dates: start: 20210115

REACTIONS (3)
  - Affective disorder [Not Recovered/Not Resolved]
  - Prescribed underdose [Unknown]
  - Urinary tract disorder [Not Recovered/Not Resolved]
